FAERS Safety Report 7415745-9 (Version None)
Quarter: 2011Q2

REPORT INFORMATION
  Report Type: 
  Country: None (occurrence: None)
  Receive Date: 20110406
  Receipt Date: 20110324
  Transmission Date: 20111010
  Serious: Yes (Hospitalization)
  Sender: FDA-Public Use
  Company Number: 027125

PATIENT
  Sex: Female
  Weight: 66 kg

DRUGS (7)
  1. ACIDUM FOLICUM [Concomitant]
  2. CERTOLIZUMAB PEGOL (CERTOLIZUMAB PEGOL) [Suspect]
     Indication: RHEUMATOID ARTHRITIS
     Dosage: (200 MG 1/X2 WEEKS SUBCUTANEOUS)
     Route: 058
     Dates: start: 20100421, end: 20110209
  3. PANTOPRAZOLE [Concomitant]
  4. ALENDRONATE SODIUM [Concomitant]
  5. METHOTREXATE [Concomitant]
  6. METHYLPREDNISOLONE [Concomitant]
  7. DAILY VITAMINS [Concomitant]

REACTIONS (7)
  - RENAL CYST [None]
  - UTERINE DISORDER [None]
  - HYPERTENSION [None]
  - HEART RATE INCREASED [None]
  - DISCOMFORT [None]
  - HOT FLUSH [None]
  - RENAL NEOPLASM [None]
